FAERS Safety Report 15712606 (Version 1)
Quarter: 2018Q4

REPORT INFORMATION
  Report Type: Spontaneous
  Country: CZ (occurrence: CZ)
  Receive Date: 20181212
  Receipt Date: 20181212
  Transmission Date: 20190205
  Serious: Yes (Disabling, Other)
  Sender: FDA-Public Use
  Company Number: CZ-ACCORD-095675

PATIENT
  Age: 82 Year
  Sex: Female

DRUGS (5)
  1. CARBOPLATIN. [Suspect]
     Active Substance: CARBOPLATIN
     Indication: LUNG CARCINOMA CELL TYPE UNSPECIFIED STAGE IV
  2. PREGABALIN. [Suspect]
     Active Substance: PREGABALIN
     Indication: RESTLESS LEGS SYNDROME
  3. FENTANYL. [Concomitant]
     Active Substance: FENTANYL
     Indication: CANCER PAIN
     Dosage: GRADUAL TITRATION OF 50 MICROG / H
     Route: 062
  4. GABAPENTIN. [Concomitant]
     Active Substance: GABAPENTIN
     Indication: RESTLESS LEGS SYNDROME
  5. PARACETAMOL/TRAMADOL [Concomitant]
     Indication: CANCER PAIN

REACTIONS (4)
  - Restless legs syndrome [Recovering/Resolving]
  - Cancer pain [Recovered/Resolved]
  - Drug intolerance [Unknown]
  - Anaemia [Unknown]
